FAERS Safety Report 19945278 (Version 1)
Quarter: 2021Q4

REPORT INFORMATION
  Report Type: Spontaneous
  Country: PT (occurrence: PT)
  Receive Date: 20211012
  Receipt Date: 20211012
  Transmission Date: 20220303
  Serious: Yes (Other)
  Sender: FDA-Public Use
  Company Number: PT-AMGEN-PRTSP2021154661

PATIENT
  Age: 62 Year
  Sex: Female

DRUGS (6)
  1. ROMIPLOSTIM [Suspect]
     Active Substance: ROMIPLOSTIM
     Indication: Thrombocytopenia
     Dosage: 1 UG/KG/WEEK, TOTAL 50 UG/WEEK
     Route: 058
     Dates: start: 201106
  2. ROMIPLOSTIM [Suspect]
     Active Substance: ROMIPLOSTIM
     Dosage: 100 MICROGRAM, QWK
     Route: 058
  3. ROMIPLOSTIM [Suspect]
     Active Substance: ROMIPLOSTIM
     Dosage: 150 MICROGRAM, QWK
     Route: 058
  4. ROMIPLOSTIM [Suspect]
     Active Substance: ROMIPLOSTIM
     Dosage: 200 MICROGRAM, QWK
     Route: 058
  5. RITUXIMAB [Concomitant]
     Active Substance: RITUXIMAB
     Indication: Thrombocytopenia
     Dosage: UNK
  6. RITUXIMAB [Concomitant]
     Active Substance: RITUXIMAB
     Dosage: UNK
     Dates: start: 201103

REACTIONS (8)
  - Conjunctival haemorrhage [Unknown]
  - Thrombocytopenia [Recovered/Resolved]
  - Weight decreased [Unknown]
  - Diarrhoea [Unknown]
  - Gingival bleeding [Unknown]
  - Off label use [Unknown]
  - Epistaxis [Unknown]
  - Ecchymosis [Unknown]

NARRATIVE: CASE EVENT DATE: 20110601
